FAERS Safety Report 8616631-9 (Version None)
Quarter: 2012Q3

REPORT INFORMATION
  Report Type: 
  Country: None (occurrence: None)
  Receive Date: 20120823
  Receipt Date: 20120816
  Transmission Date: 20120928
  Serious: Yes (Other)
  Sender: FDA-Public Use
  Company Number: CN-ROCHE-1103638

PATIENT
  Sex: Female
  Weight: 60 kg

DRUGS (2)
  1. XELODA [Suspect]
     Indication: NEOPLASM MALIGNANT
     Route: 048
     Dates: start: 20091103, end: 20091108
  2. NAVELBINE [Suspect]
     Indication: NEOPLASM MALIGNANT
     Route: 041
     Dates: start: 20091103

REACTIONS (3)
  - INTESTINAL OBSTRUCTION [None]
  - BONE PAIN [None]
  - MYALGIA [None]
